FAERS Safety Report 8544799-1 (Version None)
Quarter: 2012Q3

REPORT INFORMATION
  Report Type: 
  Country: None (occurrence: None)
  Receive Date: 20120727
  Receipt Date: 20120716
  Transmission Date: 20120928
  Serious: Yes (Other)
  Sender: FDA-Public Use
  Company Number: GB-ROCHE-1089493

PATIENT
  Sex: Female

DRUGS (1)
  1. HERCEPTIN [Suspect]
     Indication: BREAST CANCER

REACTIONS (9)
  - BLOOD GLUCOSE DECREASED [None]
  - PALLOR [None]
  - ONYCHOCLASIS [None]
  - TREMOR [None]
  - DYSPNOEA [None]
  - COLD SWEAT [None]
  - FATIGUE [None]
  - VARICELLA [None]
  - CHEST DISCOMFORT [None]
